FAERS Safety Report 12247541 (Version 3)
Quarter: 2016Q2

REPORT INFORMATION
  Report Type: Report from Study
  Country: US (occurrence: US)
  Receive Date: 20160407
  Receipt Date: 20160503
  Transmission Date: 20160815
  Serious: Yes (Other)
  Sender: FDA-Public Use
  Company Number: US-GILEAD-2016-0203892

PATIENT
  Age: 72 Year
  Sex: Female

DRUGS (7)
  1. IDELALISIB [Suspect]
     Active Substance: IDELALISIB
     Dosage: 100 MG, BID
     Route: 048
     Dates: start: 20160326, end: 20160420
  2. MEDROL                             /00049607/ [Concomitant]
     Dosage: UNK
  3. CATAFLAM                           /00372305/ [Concomitant]
     Indication: PAIN
     Dosage: UNK
  4. TYLENOL [Concomitant]
     Active Substance: ACETAMINOPHEN
     Dosage: UNK
  5. PREDNISONE. [Concomitant]
     Active Substance: PREDNISONE
     Dosage: UNK
  6. HYDREA [Suspect]
     Active Substance: HYDROXYUREA
     Indication: PRODUCT USED FOR UNKNOWN INDICATION
     Dosage: UNK
     Route: 065
  7. IDELALISIB [Suspect]
     Active Substance: IDELALISIB
     Indication: CHRONIC LYMPHOCYTIC LEUKAEMIA
     Dosage: 100 MG, BID
     Route: 048
     Dates: start: 20160219, end: 20160318

REACTIONS (20)
  - Neuropathy peripheral [Unknown]
  - Hypersensitivity [Unknown]
  - Skin lesion [Unknown]
  - Blood glucose abnormal [Unknown]
  - Red blood cell count increased [Unknown]
  - Haemoglobin increased [Unknown]
  - Pruritus [Not Recovered/Not Resolved]
  - Hypoaesthesia [Not Recovered/Not Resolved]
  - Pain [Unknown]
  - Arthritis [Unknown]
  - Abasia [Unknown]
  - Diabetes mellitus [Unknown]
  - White blood cell count increased [Unknown]
  - Erythema [Not Recovered/Not Resolved]
  - Abdominal discomfort [Unknown]
  - Unevaluable event [Unknown]
  - Pain in extremity [Unknown]
  - Nausea [Unknown]
  - Abdominal pain upper [Unknown]
  - Muscular weakness [Not Recovered/Not Resolved]

NARRATIVE: CASE EVENT DATE: 201602
